FAERS Safety Report 20473828 (Version 3)
Quarter: 2022Q2

REPORT INFORMATION
  Report Type: Report from Study
  Country: US (occurrence: US)
  Receive Date: 20220215
  Receipt Date: 20220401
  Transmission Date: 20220721
  Serious: Yes (Hospitalization)
  Sender: FDA-Public Use
  Company Number: US-NOVARTISPH-NVSC2021US298713

PATIENT
  Age: 20 Year
  Sex: Male

DRUGS (7)
  1. RUXOLITINIB [Suspect]
     Active Substance: RUXOLITINIB
     Indication: B precursor type acute leukaemia
     Dosage: 110 MG, BID
     Route: 048
     Dates: start: 20190218, end: 20201230
  2. RUXOLITINIB [Suspect]
     Active Substance: RUXOLITINIB
     Dosage: 110 MG, BID
     Route: 048
     Dates: start: 20210114
  3. VINCRISTINE [Suspect]
     Active Substance: VINCRISTINE
     Indication: B precursor type acute leukaemia
     Dosage: VARIOUS
     Route: 042
     Dates: start: 20190218, end: 20201230
  4. VINCRISTINE [Suspect]
     Active Substance: VINCRISTINE
     Dosage: VARIOUS
     Route: 042
     Dates: start: 20210114
  5. MERCAPTOPURINE [Suspect]
     Active Substance: MERCAPTOPURINE
     Indication: B precursor type acute leukaemia
     Dosage: VARIOUS
     Route: 048
     Dates: start: 20190218, end: 20211230
  6. MERCAPTOPURINE [Suspect]
     Active Substance: MERCAPTOPURINE
     Dosage: VARIOUS
     Route: 048
     Dates: start: 20210114
  7. OXYCODONE [Concomitant]
     Active Substance: OXYCODONE
     Indication: Arthralgia
     Dosage: UNK
     Route: 065

REACTIONS (1)
  - Febrile neutropenia [Recovered/Resolved]

NARRATIVE: CASE EVENT DATE: 20201230
